FAERS Safety Report 21662954 (Version 1)
Quarter: 2022Q4

REPORT INFORMATION
  Report Type: Spontaneous
  Country: US (occurrence: None)
  Receive Date: 20221129
  Receipt Date: 20221129
  Transmission Date: 20230113
  Serious: Yes (Life-Threatening)
  Sender: FDA-Public Use
  Company Number: None

PATIENT
  Age: 62 Year
  Sex: Male

DRUGS (27)
  1. ORENCIA [Suspect]
     Active Substance: ABATACEPT
     Indication: Rheumatoid arthritis
     Dosage: FREQUENCY : WEEKLY;?
     Route: 058
     Dates: start: 20180808
  2. ORENCIA [Suspect]
     Active Substance: ABATACEPT
     Dosage: OTHER QUANTITY : 1 ML (125 MG);?FREQUENCY : WEEKLY;?
     Route: 058
  3. ALBUTEROL [Concomitant]
  4. ASPIRIN CHW [Concomitant]
  5. ATORVASTATIN [Concomitant]
     Active Substance: ATORVASTATIN
  6. BENZONATATE [Concomitant]
     Active Substance: BENZONATATE
  7. BUT/APAP/CAF [Concomitant]
  8. CHLORHEXIDINE GLUCONATE [Concomitant]
     Active Substance: CHLORHEXIDINE GLUCONATE
  9. CYCLOBENZAPRINE [Concomitant]
     Active Substance: CYCLOBENZAPRINE
  10. DILTIAZEM [Concomitant]
  11. ELIQUIS [Concomitant]
  12. ENBREL [Concomitant]
     Active Substance: ETANERCEPT
  13. FOLIC ACID [Concomitant]
     Active Substance: FOLIC ACID
  14. IBUPROFEN [Concomitant]
  15. MAGNESIUM OXIDE [Concomitant]
     Active Substance: MAGNESIUM OXIDE
  16. METHYLPREDNISOLONE [Concomitant]
     Active Substance: METHYLPREDNISOLONE
  17. METOPROL SUC [Concomitant]
  18. MONTELUKAST [Concomitant]
     Active Substance: MONTELUKAST SODIUM
  19. PANTOPRAZOLE [Concomitant]
     Active Substance: PANTOPRAZOLE
  20. PREDNISONE [Concomitant]
     Active Substance: PREDNISONE
  21. PROMETHAZINE SYP [Concomitant]
  22. RANITIDINE [Concomitant]
     Active Substance: RANITIDINE
  23. SF 5000 PLUS CRE [Concomitant]
  24. SILDENAFIL [Concomitant]
  25. TRAMADOL HCL [Concomitant]
     Active Substance: TRAMADOL HYDROCHLORIDE
  26. VITAMIN D [Concomitant]
  27. VIVITROL INJ [Concomitant]

REACTIONS (6)
  - Peripheral swelling [None]
  - Aneurysm [None]
  - Atrial fibrillation [None]
  - Condition aggravated [None]
  - Loss of personal independence in daily activities [None]
  - Pain [None]

NARRATIVE: CASE EVENT DATE: 20221101
